FAERS Safety Report 15616713 (Version 1)
Quarter: 2018Q4

REPORT INFORMATION
  Report Type: Spontaneous
  Country: US (occurrence: US)
  Receive Date: 20181109
  Receipt Date: 20181109
  Transmission Date: 20190205
  Serious: Yes (Hospitalization)
  Sender: FDA-Public Use
  Company Number: None

PATIENT
  Age: 89 Month
  Sex: Male
  Weight: 73.8 kg

DRUGS (22)
  1. GLUCERNA ADVANCE SHAKE [Concomitant]
  2. IPRATROPIUM-ALBUTEROL [Concomitant]
     Active Substance: ALBUTEROL\IPRATROPIUM
  3. METFORMIN [Concomitant]
     Active Substance: METFORMIN HYDROCHLORIDE
  4. MYLANTA [Concomitant]
     Active Substance: ALUMINUM HYDROXIDE\DIMETHICONE\MAGNESIUM HYDROXIDE
  5. ROBITUSSIN (GUAIFENESIN) [Concomitant]
     Active Substance: GUAIFENESIN
  6. CALCIUM 500+ D [Concomitant]
  7. LISINOPRIL. [Concomitant]
     Active Substance: LISINOPRIL
  8. CELEXA [Concomitant]
     Active Substance: CITALOPRAM HYDROBROMIDE
  9. FERROUS GLUCONATE [Concomitant]
     Active Substance: FERROUS GLUCONATE
  10. LABETALOL [Concomitant]
     Active Substance: LABETALOL\LABETALOL HYDROCHLORIDE
  11. AMLODIPINE [Concomitant]
     Active Substance: AMLODIPINE BESYLATE
  12. ASPIRIN. [Concomitant]
     Active Substance: ASPIRIN
  13. LASIX [Concomitant]
     Active Substance: FUROSEMIDE
  14. MILK OF MAGNESIA CONCENTRATE [Concomitant]
  15. PROTONIX [Concomitant]
     Active Substance: PANTOPRAZOLE SODIUM
  16. REMERON [Concomitant]
     Active Substance: MIRTAZAPINE
  17. MULTI COMPLETE [Concomitant]
  18. ATORVASTATIN [Concomitant]
     Active Substance: ATORVASTATIN
  19. MELATONIN [Concomitant]
     Active Substance: MELATONIN
  20. NYSTATIN. [Concomitant]
     Active Substance: NYSTATIN
  21. SENNA [Concomitant]
     Active Substance: SENNA LEAF\SENNOSIDES\SENNOSIDES A AND B
  22. ARANESP [Suspect]
     Active Substance: DARBEPOETIN ALFA
     Indication: ANAEMIA
     Route: 058
     Dates: start: 20180806

REACTIONS (1)
  - Hypoxia [None]

NARRATIVE: CASE EVENT DATE: 20181109
